FAERS Safety Report 6198281-X (Version None)
Quarter: 2009Q2

REPORT INFORMATION
  Report Type: 
  Country: None (occurrence: None)
  Receive Date: 20090521
  Receipt Date: 20090320
  Transmission Date: 20091009
  Serious: No
  Sender: FDA-Public Use
  Company Number: US-BAYER-200910071BCC

PATIENT
  Age: 87 Year
  Sex: Female
  Weight: 50 kg

DRUGS (6)
  1. ALEVE [Suspect]
     Indication: ARTHRALGIA
     Dosage: TOTAL DAILY DOSE: 220 MG  UNIT DOSE: 220 MG
     Route: 048
     Dates: start: 20090106, end: 20090106
  2. LEVOTHIROXINE [Concomitant]
     Indication: DRUG USE FOR UNKNOWN INDICATION
     Dosage: YEARS AGO
     Route: 065
  3. TOPAMAX [Concomitant]
     Indication: DRUG USE FOR UNKNOWN INDICATION
     Dosage: TOTAL DAILY DOSE: 5.0 MG  UNIT DOSE: 2.5 MG
     Route: 065
     Dates: start: 20040101
  4. NORTRYPTILINE [Concomitant]
     Indication: DRUG USE FOR UNKNOWN INDICATION
     Dosage: TOTAL DAILY DOSE: 35 MG  UNIT DOSE: 35 MG
     Route: 065
     Dates: start: 20040101
  5. OMEPRAZOLE [Concomitant]
     Indication: DRUG USE FOR UNKNOWN INDICATION
     Dosage: TOTAL DAILY DOSE: 20 MG  UNIT DOSE: 20 MG
     Route: 065
     Dates: start: 20080101
  6. BISOPROPOLE FUMARATE [Concomitant]
     Indication: DRUG USE FOR UNKNOWN INDICATION
     Dosage: TOTAL DAILY DOSE: 2.5 MG  UNIT DOSE: 5 MG
     Route: 065
     Dates: start: 20081101

REACTIONS (6)
  - APHTHOUS STOMATITIS [None]
  - COUGH [None]
  - DYSPEPSIA [None]
  - GLOSSODYNIA [None]
  - LIP SWELLING [None]
  - PARAESTHESIA ORAL [None]
